FAERS Safety Report 8127933-7 (Version None)
Quarter: 2012Q1

REPORT INFORMATION
  Report Type: 
  Country: None (occurrence: None)
  Receive Date: 20120210
  Receipt Date: 20120209
  Transmission Date: 20120608
  Serious: Yes (Hospitalization)
  Sender: FDA-Public Use
  Company Number: FR-PFIZER INC-HQWYE647630OCT03

PATIENT
  Age: 67 Year
  Sex: Male

DRUGS (13)
  1. OXAZEPAM [Suspect]
     Dosage: 50 MG, 2X/DAY
     Route: 048
     Dates: start: 20030414, end: 20030912
  2. MUCOMYST [Suspect]
     Dosage: 200 MG, 3X/DAY
     Route: 048
     Dates: start: 20030908, end: 20030912
  3. METFORMIN HCL [Suspect]
     Dosage: 280 MG, 2X/DAY
     Route: 048
     Dates: start: 20030414, end: 20030912
  4. RULID [Suspect]
     Dosage: 150 MG, 2X/DAY
     Route: 048
     Dates: start: 20030908, end: 20030912
  5. PRAVASTATIN [Suspect]
     Dosage: 40 MG, 1X/DAY
     Route: 048
     Dates: start: 20020101, end: 20030912
  6. SURMONTIL [Suspect]
     Dosage: 100 MG, 2X/DAY
     Route: 048
     Dates: start: 20030414, end: 20030912
  7. BISOPROLOL FUMARATE [Suspect]
     Dosage: 2.5 MG, 2X/DAY
     Route: 048
     Dates: start: 20020101, end: 20030912
  8. PANTOPRAZOLE [Suspect]
     Dosage: 40 MG, 1X/DAY
     Route: 048
     Dates: start: 20030414, end: 20030912
  9. NOCTAMID [Suspect]
     Dosage: 2 MG, 1X/DAY
     Route: 048
     Dates: start: 20030908, end: 20030912
  10. PREVISCAN [Suspect]
     Dosage: 1 DF, 3X/DAY
     Route: 048
     Dates: start: 20020101, end: 20030912
  11. ZESTRIL [Suspect]
     Dosage: 5 MG, 2X/DAY
     Route: 048
     Dates: start: 20020101, end: 20020912
  12. REPAGLINIDE [Suspect]
     Dosage: 2 MG - FREQUENCY UNSPECIFIED
     Route: 048
     Dates: start: 20030414, end: 20030912
  13. ACETAMINOPHEN [Suspect]
     Dosage: 1 DF, 4X/DAY
     Route: 048
     Dates: start: 20030908, end: 20030912

REACTIONS (6)
  - BRONCHITIS [None]
  - RENAL FAILURE ACUTE [None]
  - RHABDOMYOLYSIS [None]
  - ACUTE RESPIRATORY FAILURE [None]
  - HYPERTHERMIA [None]
  - SHOCK HAEMORRHAGIC [None]
